FAERS Safety Report 14807367 (Version 3)
Quarter: 2018Q3

REPORT INFORMATION
  Report Type: Spontaneous
  Country: US (occurrence: US)
  Receive Date: 20180425
  Receipt Date: 20180703
  Transmission Date: 20181010
  Serious: No
  Sender: FDA-Public Use
  Company Number: US-ACTELION-A-US2018-170604

PATIENT
  Age: 39 Year
  Sex: Female
  Weight: 79.37 kg

DRUGS (5)
  1. VELETRI [Suspect]
     Active Substance: EPOPROSTENOL
     Indication: PULMONARY ARTERIAL HYPERTENSION
     Dosage: 14 NG/KG, PER MIN
     Route: 042
  2. WARFARIN [Concomitant]
     Active Substance: WARFARIN
  3. TRACLEER [Suspect]
     Active Substance: BOSENTAN
     Indication: PULMONARY ARTERIAL HYPERTENSION
     Dosage: 125 MG, BID
     Route: 048
  4. ADCIRCA [Concomitant]
     Active Substance: TADALAFIL
  5. EPOPROSTENOL TEVA [Concomitant]

REACTIONS (9)
  - Fall [Unknown]
  - Asthma [Unknown]
  - Palpitations [Unknown]
  - Syncope [Unknown]
  - Drug dose omission [Unknown]
  - Temperature intolerance [Unknown]
  - Eye movement disorder [Unknown]
  - Contusion [Unknown]
  - Headache [Unknown]
